FAERS Safety Report 6752377-X (Version None)
Quarter: 2010Q2

REPORT INFORMATION
  Report Type: 
  Country: None (occurrence: None)
  Receive Date: 20100601
  Receipt Date: 20100601
  Transmission Date: 20101027
  Serious: Yes (Other)
  Sender: FDA-Public Use
  Company Number: None

PATIENT
  Sex: Female
  Weight: 49.4421 kg

DRUGS (1)
  1. PROAIR HFA [Suspect]
     Indication: ASTHMA EXERCISE INDUCED
     Dosage: 2 PUFFS AS NEEDED INHAL
     Dates: start: 20090701, end: 20100528

REACTIONS (5)
  - BRONCHOSPASM [None]
  - DEVICE INEFFECTIVE [None]
  - PRODUCT QUALITY ISSUE [None]
  - PRODUCT SUBSTITUTION ISSUE [None]
  - QUALITY OF LIFE DECREASED [None]
